FAERS Safety Report 18123535 (Version 1)
Quarter: 2020Q3

REPORT INFORMATION
  Report Type: Spontaneous
  Country: US (occurrence: US)
  Receive Date: 20200807
  Receipt Date: 20200807
  Transmission Date: 20201103
  Serious: Yes (Hospitalization)
  Sender: FDA-Public Use
  Company Number: None

PATIENT
  Sex: Female

DRUGS (21)
  1. TRAMADOL HCL [Concomitant]
     Active Substance: TRAMADOL HYDROCHLORIDE
  2. CHOLECALCIFEROL [Concomitant]
     Active Substance: CHOLECALCIFEROL
  3. MONTEMONTELUKAST SODIUM LUKAST SODIUM [Concomitant]
  4. FLONASE [Concomitant]
     Active Substance: FLUTICASONE PROPIONATE
  5. ACETAMINOPHEN. [Concomitant]
     Active Substance: ACETAMINOPHEN
  6. ACYCLOVIR. [Concomitant]
     Active Substance: ACYCLOVIR
  7. MYCOPHENOLATE MOFETIL. [Concomitant]
     Active Substance: MYCOPHENOLATE MOFETIL
  8. PRAVASTATIN SODIUM. [Concomitant]
     Active Substance: PRAVASTATIN SODIUM
  9. PRENATAL MULTIVITAMIN [Concomitant]
  10. TRULICITY [Concomitant]
     Active Substance: DULAGLUTIDE
  11. PREDNISOLONE. [Concomitant]
     Active Substance: PREDNISOLONE
  12. OMEPRAZOLE. [Concomitant]
     Active Substance: OMEPRAZOLE
  13. VITAMIN D [Concomitant]
     Active Substance: VITAMIN D NOS
  14. TACROLIMUS. [Concomitant]
     Active Substance: TACROLIMUS
  15. AZITHROMYCIN ANHYDROUS. [Concomitant]
     Active Substance: AZITHROMYCIN ANHYDROUS
  16. VITAMIN D [Concomitant]
     Active Substance: VITAMIN D NOS
  17. C?COLISTIMETHATE 150MG/4ML 0.225% NACL [Suspect]
     Active Substance: COLISTIMETHATE SODIUM
     Indication: LUNG TRANSPLANT
     Route: 055
  18. ALBUTEROL. [Concomitant]
     Active Substance: ALBUTEROL
  19. CALCIUM [Concomitant]
     Active Substance: CALCIUM
  20. BACTRIM [Concomitant]
     Active Substance: SULFAMETHOXAZOLE\TRIMETHOPRIM
  21. ZINC GLUCONATE [Concomitant]
     Active Substance: ZINC GLUCONATE

REACTIONS (2)
  - Chest discomfort [None]
  - Oxygen saturation decreased [None]
